FAERS Safety Report 7877625 (Version 2)
Quarter: 2013Q2

REPORT INFORMATION
  Report Type: Spontaneous
  Country: FR (occurrence: FR)
  Receive Date: 20110330
  Receipt Date: 20130621
  Transmission Date: 20140414
  Serious: Yes (Hospitalization)
  Sender: FDA-Public Use
  Company Number: FR-SANOFI-AVENTIS-2011SA018815

PATIENT
  Age: 85 Year
  Sex: Female

DRUGS (7)
  1. LASILIX [Suspect]
     Indication: HYPERTENSION
     Route: 048
  2. PERINDOPRIL [Suspect]
     Indication: HYPERTENSION
     Route: 048
  3. NICOTINE [Suspect]
     Route: 062
  4. NOVOMIX [Concomitant]
  5. NOVORAPID [Concomitant]
  6. TAHOR [Concomitant]
     Route: 048
  7. CELESTENE [Concomitant]

REACTIONS (5)
  - Fall [Recovered/Resolved with Sequelae]
  - Facial bones fracture [Recovered/Resolved with Sequelae]
  - Orthostatic hypotension [Recovered/Resolved with Sequelae]
  - Renal failure acute [Recovered/Resolved with Sequelae]
  - Metabolic acidosis [Recovered/Resolved with Sequelae]
